FAERS Safety Report 8176888-8 (Version None)
Quarter: 2012Q1

REPORT INFORMATION
  Report Type: 
  Country: None (occurrence: None)
  Receive Date: 20120301
  Receipt Date: 20120222
  Transmission Date: 20120608
  Serious: Yes (Other)
  Sender: FDA-Public Use
  Company Number: JP-PFIZER INC-2011279401

PATIENT
  Age: 68 Year
  Sex: Male

DRUGS (2)
  1. PREDNISOLONE [Suspect]
     Dosage: UNK MG, UNK
     Route: 048
  2. METHYLPREDNISOLONE SODIUM SUCCINATE [Suspect]
     Dosage: 1 G PER DAY

REACTIONS (12)
  - DIZZINESS [None]
  - ANXIETY [None]
  - HYPOMANIA [None]
  - AGGRESSION [None]
  - PSYCHOMOTOR HYPERACTIVITY [None]
  - DEPRESSION [None]
  - INSOMNIA [None]
  - ELEVATED MOOD [None]
  - DECREASED APPETITE [None]
  - LOGORRHOEA [None]
  - JUDGEMENT IMPAIRED [None]
  - PRESSURE OF SPEECH [None]
